FAERS Safety Report 5724194-0 (Version None)
Quarter: 2008Q2

REPORT INFORMATION
  Report Type: 
  Country: None (occurrence: None)
  Receive Date: 20080430
  Receipt Date: 20080418
  Transmission Date: 20081010
  Serious: Yes (Hospitalization)
  Sender: FDA-Public Use
  Company Number: DE-GENENTECH-255081

PATIENT
  Sex: Female
  Weight: 66.3 kg

DRUGS (18)
  1. BEVACIZUMAB [Suspect]
     Indication: NON-SMALL CELL LUNG CANCER
     Dosage: 990 MG, Q3W
     Route: 042
     Dates: start: 20071023
  2. CISPLATIN [Suspect]
     Indication: NON-SMALL CELL LUNG CANCER
     Dosage: 90 MG, UNK
     Route: 042
     Dates: start: 20071023
  3. GEMZAR [Suspect]
     Indication: NON-SMALL CELL LUNG CANCER
     Dosage: 2260 MG, UNK
     Route: 042
     Dates: start: 20071023
  4. CARBOPLATIN [Suspect]
     Indication: NON-SMALL CELL LUNG CANCER
     Dosage: 525 MG, UNK
     Route: 042
     Dates: start: 20071113
  5. CARBOPLATIN [Suspect]
     Dates: start: 20071120
  6. NOVALGIN [Concomitant]
     Indication: DRUG USE FOR UNKNOWN INDICATION
  7. OMEPRAZOLE [Concomitant]
     Indication: DRUG USE FOR UNKNOWN INDICATION
  8. FENTANYL CITRATE [Concomitant]
     Indication: DRUG USE FOR UNKNOWN INDICATION
     Dates: start: 20070615
  9. LERCANIDIPINE [Concomitant]
     Indication: DRUG USE FOR UNKNOWN INDICATION
  10. JODID [Concomitant]
     Indication: DRUG USE FOR UNKNOWN INDICATION
  11. UNSPECIFIED DRUG [Concomitant]
     Indication: DRUG USE FOR UNKNOWN INDICATION
  12. PANTOPRAZOLE SODIUM [Concomitant]
     Indication: DRUG USE FOR UNKNOWN INDICATION
     Dates: start: 20071114
  13. SERTRALINE [Concomitant]
     Indication: DRUG USE FOR UNKNOWN INDICATION
  14. LERCADIP [Concomitant]
     Indication: DRUG USE FOR UNKNOWN INDICATION
  15. KALIUMIODID [Concomitant]
     Indication: DRUG USE FOR UNKNOWN INDICATION
  16. VALSARTAN [Concomitant]
     Indication: DRUG USE FOR UNKNOWN INDICATION
  17. ONDANSETRON HCL [Concomitant]
     Indication: DRUG USE FOR UNKNOWN INDICATION
     Dates: start: 20071114, end: 20071114
  18. LORAZEPAM [Concomitant]
     Indication: DRUG USE FOR UNKNOWN INDICATION
     Dates: start: 20071113, end: 20071113

REACTIONS (2)
  - PULMONARY EMBOLISM [None]
  - VOMITING [None]
